FAERS Safety Report 8286909-X (Version None)
Quarter: 2012Q2

REPORT INFORMATION
  Report Type: 
  Country: None (occurrence: None)
  Receive Date: 20120416
  Receipt Date: 20120409
  Transmission Date: 20120825
  Serious: Yes (Death, Other)
  Sender: FDA-Public Use
  Company Number: CN-ASTELLAS-2012JP003053

PATIENT
  Age: 51 Year
  Sex: Female

DRUGS (6)
  1. TACROLIMUS [Suspect]
     Indication: IMMUNOSUPPRESSANT DRUG THERAPY
     Route: 065
  2. ANTIBIOTICS [Concomitant]
     Indication: ACUTE GRAFT VERSUS HOST DISEASE
     Route: 048
  3. ANTIHISTAMINES [Concomitant]
     Indication: ACUTE GRAFT VERSUS HOST DISEASE
     Route: 048
  4. TACROLIMUS [Suspect]
     Route: 065
  5. IMMUNE GLOBULIN NOS [Suspect]
     Indication: IMMUNOSUPPRESSANT DRUG THERAPY
     Route: 042
  6. METHYLPREDNISOLONE [Suspect]
     Indication: IMMUNOSUPPRESSANT DRUG THERAPY
     Route: 042

REACTIONS (4)
  - ACUTE GRAFT VERSUS HOST DISEASE [None]
  - SEPSIS [None]
  - MULTI-ORGAN FAILURE [None]
  - DRUG INEFFECTIVE [None]
